FAERS Safety Report 23995890 (Version 2)
Quarter: 2024Q2

REPORT INFORMATION
  Report Type: Spontaneous
  Country: US (occurrence: US)
  Receive Date: 20240620
  Receipt Date: 20240620
  Transmission Date: 20240716
  Serious: Yes (Hospitalization)
  Sender: FDA-Public Use
  Company Number: US-ROCHE-10000003039

PATIENT
  Age: 66 Year
  Sex: Male

DRUGS (1)
  1. DORNASE ALFA [Suspect]
     Active Substance: DORNASE ALFA
     Indication: Bronchiectasis
     Route: 065

REACTIONS (2)
  - Pneumomediastinum [Recovered/Resolved]
  - Off label use [Unknown]
